FAERS Safety Report 16567238 (Version 1)
Quarter: 2019Q3

REPORT INFORMATION
  Report Type: Spontaneous
  Country: FR (occurrence: FR)
  Receive Date: 20190712
  Receipt Date: 20190712
  Transmission Date: 20191004
  Serious: Yes (Disabling)
  Sender: FDA-Public Use
  Company Number: FR-PFIZER INC-2018349260

PATIENT
  Age: 71 Year
  Sex: Male
  Weight: 113 kg

DRUGS (33)
  1. METFORMIN [Concomitant]
     Active Substance: METFORMIN HYDROCHLORIDE
     Dosage: 700 MG, 3X/DAY
  2. METFORMIN [Concomitant]
     Active Substance: METFORMIN HYDROCHLORIDE
     Dosage: 850 MG, 2X/DAY
  3. RHINOMAXIL [Concomitant]
     Active Substance: BECLOMETHASONE DIPROPIONATE
     Dosage: 100 UG, UNK (ONCE)
  4. HEXAQUINE [Concomitant]
     Active Substance: NIAOULI OIL\QUININE BENZOATE\THIAMINE HYDROCHLORIDE
     Dosage: UNK
  5. IZALGI [Concomitant]
     Active Substance: ACETAMINOPHEN\OPIUM
     Dosage: UNK
  6. GAVISCON [Concomitant]
     Active Substance: ALUMINUM HYDROXIDE\MAGNESIUM CARBONATE
     Dosage: 10 ML, DAILY (3 TO 4 DF)
  7. BISOPROLOL TEVA [Concomitant]
     Active Substance: BISOPROLOL
     Dosage: 5 MG, 2X/DAY
  8. AMLOR [Concomitant]
     Active Substance: AMLODIPINE BESYLATE
     Dosage: 5 MG, UNK (ONCE)
  9. PANTOPRAZOLE SODIUM. [Concomitant]
     Active Substance: PANTOPRAZOLE SODIUM
     Dosage: 40 MG, UNK (ONCE)
  10. RIVOTRIL [Concomitant]
     Active Substance: CLONAZEPAM
     Dosage: 30 DF, DAILY
  11. BETASERC [BETAHISTINE] [Concomitant]
     Active Substance: BETAHISTINE
     Dosage: 24 MG, 2X/DAY
  12. COTAREG [Concomitant]
     Active Substance: HYDROCHLOROTHIAZIDE\VALSARTAN
     Dosage: 12.8 MG, UNK (160/121.5 MG) (ONCE)
  13. MOTILIUM [Concomitant]
     Active Substance: DOMPERIDONE
     Dosage: 10 MG, 2X/DAY
  14. CYMBALTA [Concomitant]
     Active Substance: DULOXETINE HYDROCHLORIDE
     Dosage: 60 MG, 2X/DAY
  15. ATORVASTATIN CALCIUM. [Suspect]
     Active Substance: ATORVASTATIN CALCIUM
     Dosage: 80 MG, UNK
     Dates: start: 20150815, end: 20150915
  16. VICTOZA [Concomitant]
     Active Substance: LIRAGLUTIDE
     Dosage: 0.6 MG, UNK (1 DF FOR 15 DAYS)
     Route: 058
  17. LAROXYL [Concomitant]
     Active Substance: AMITRIPTYLINE HYDROCHLORIDE
     Dosage: UNK
  18. JANUVIA [Concomitant]
     Active Substance: SITAGLIPTIN PHOSPHATE
     Dosage: 50 MG, UNK (ONCE)
  19. NATISPRAY [Concomitant]
     Active Substance: NITROGLYCERIN
     Dosage: 0.30 MG, UNK
     Route: 048
  20. LYRICA [Concomitant]
     Active Substance: PREGABALIN
     Dosage: 25 MG, 1X/DAY
  21. LYRICA [Concomitant]
     Active Substance: PREGABALIN
     Dosage: 2 DF, 1X/DAY (25 MG)
  22. LYRICA [Concomitant]
     Active Substance: PREGABALIN
     Dosage: 3 DF, 1X/DAY
  23. CLOPIDOGREL [Concomitant]
     Active Substance: CLOPIDOGREL BISULFATE
     Dosage: 75 MG, UNK (1 DF ONCE)
  24. PARACETAMOL ARROW [Concomitant]
     Active Substance: ACETAMINOPHEN
     Dosage: 1 G, 4X/DAY
  25. IPRATROPIUM BROMIDE\FENOTEROL HYDROBROMIDE [Concomitant]
     Active Substance: FENOTEROL HYDROBROMIDE\IPRATROPIUM BROMIDE
     Dosage: 70 MG, UNK (50/20 MG, ONCE)
     Route: 055
  26. KARDEGIC [Concomitant]
     Active Substance: ASPIRIN DL-LYSINE
     Dosage: 75 MG, UNK (ONCE)
  27. GELOX [Concomitant]
     Active Substance: ALUMINUM HYDROXIDE\MAGNESIUM HYDROXIDE\MONTMORILLONITE
     Dosage: UNK, (1 UNITS NOS) 3X/DAY
  28. ATORVASTATIN CALCIUM. [Suspect]
     Active Substance: ATORVASTATIN CALCIUM
     Dosage: 40 MG, UNK
     Dates: start: 20150815, end: 20180615
  29. VICTOZA [Concomitant]
     Active Substance: LIRAGLUTIDE
     Dosage: 1.8 MG, UNK (1 DF FOR 15 DAYS)
  30. GABAPENTIN. [Concomitant]
     Active Substance: GABAPENTIN
     Dosage: 800 MG, UNK
  31. VICTOZA [Concomitant]
     Active Substance: LIRAGLUTIDE
     Dosage: 1.2 MG, UNK (1 DF FOR 15 DAYS)
  32. TADENAN [Concomitant]
     Active Substance: PYGEUM
     Dosage: 50 MG, UNK
  33. WYSTAMM [Concomitant]
     Active Substance: RUPATADINE FUMARATE
     Dosage: 10 MG, UNK (ONCE)

REACTIONS (11)
  - Cyst [Unknown]
  - Hereditary disorder [Recovering/Resolving]
  - Hypoaesthesia [Recovering/Resolving]
  - Visual impairment [Recovering/Resolving]
  - Dysgraphia [Unknown]
  - Bone disorder [Recovering/Resolving]
  - Muscle disorder [Recovering/Resolving]
  - Gynaecomastia [Recovering/Resolving]
  - Nervous system disorder [Recovering/Resolving]
  - Lung disorder [Recovering/Resolving]
  - Pain [Recovering/Resolving]

NARRATIVE: CASE EVENT DATE: 2018
